FAERS Safety Report 6083797-7 (Version None)
Quarter: 2009Q1

REPORT INFORMATION
  Report Type: 
  Country: None (occurrence: None)
  Receive Date: 20090217
  Receipt Date: 20090203
  Transmission Date: 20090719
  Serious: No
  Sender: FDA-Public Use
  Company Number: US025397

PATIENT

DRUGS (3)
  1. FENTORA [Suspect]
     Indication: CANCER PAIN
     Dosage: 100 UG TID BUCCAL
     Route: 002
  2. ACTIQ [Suspect]
     Indication: CANCER PAIN
     Dosage: 400 UG BUCCAL
     Route: 002
  3. DILAUDID [Concomitant]

REACTIONS (1)
  - DRUG PRESCRIBING ERROR [None]
